FAERS Safety Report 8001989-4 (Version None)
Quarter: 2011Q4

REPORT INFORMATION
  Report Type: 
  Country: None (occurrence: None)
  Receive Date: 20111222
  Receipt Date: 20111215
  Transmission Date: 20120403
  Serious: Yes (Hospitalization, Other)
  Sender: FDA-Public Use
  Company Number: US-CELGENEUS-163-21880-11062714

PATIENT
  Sex: Female
  Weight: 84.898 kg

DRUGS (7)
  1. REVLIMID [Suspect]
     Indication: MULTIPLE MYELOMA
     Dosage: 10 MILLIGRAM
     Route: 048
     Dates: start: 20090811
  2. METFORMIN HCL [Concomitant]
     Route: 065
  3. ASPIRIN [Concomitant]
     Indication: ANTICOAGULANT THERAPY
  4. COUMADIN [Concomitant]
  5. REVLIMID [Suspect]
     Dosage: 5 MILLIGRAM
     Route: 048
     Dates: start: 20091001
  6. DEXAMETHASONE [Concomitant]
     Route: 065
  7. COUMADIN [Concomitant]
     Indication: ANTICOAGULANT THERAPY
     Route: 065

REACTIONS (3)
  - VASCULAR PSEUDOANEURYSM [None]
  - HAEMATOMA [None]
  - THROMBOSIS [None]
